FAERS Safety Report 11455597 (Version 1)
Quarter: 2015Q3

REPORT INFORMATION
  Report Type: Spontaneous
  Country: US (occurrence: US)
  Receive Date: 20150903
  Receipt Date: 20150903
  Transmission Date: 20151125
  Serious: No
  Sender: FDA-Public Use
  Company Number: US-BEH-2014044491

PATIENT
  Sex: Female
  Weight: 97 kg

DRUGS (33)
  1. VAGICAINE CREAM [Concomitant]
     Route: 061
  2. COZAAR [Concomitant]
     Active Substance: LOSARTAN POTASSIUM
  3. ALL OTHER THERAPEUTIC PRODUCTS [Concomitant]
     Active Substance: UNSPECIFIED INGREDIENT
  4. BENZONATATE. [Concomitant]
     Active Substance: BENZONATATE
  5. PROMETHAZINE [Concomitant]
     Active Substance: PROMETHAZINE\PROMETHAZINE HYDROCHLORIDE
  6. ACETAMINOPHEN. [Concomitant]
     Active Substance: ACETAMINOPHEN
  7. LANTUS [Concomitant]
     Active Substance: INSULIN GLARGINE
  8. ALPRAZOLAM. [Concomitant]
     Active Substance: ALPRAZOLAM
  9. LYRICA [Concomitant]
     Active Substance: PREGABALIN
     Dosage: 75
  10. HEPARIN [Concomitant]
     Active Substance: HEPARIN SODIUM
  11. HUMALOG [Concomitant]
     Active Substance: INSULIN LISPRO
  12. GABAPENTIN. [Concomitant]
     Active Substance: GABAPENTIN
  13. BUTALB-ACETAMIN-CAFF [Concomitant]
  14. MECLIZINE [Concomitant]
     Active Substance: MECLIZINE\MECLIZINE HYDROCHLORIDE
  15. PROAIR HFA [Concomitant]
     Active Substance: ALBUTEROL SULFATE
  16. LISINOPRIL. [Concomitant]
     Active Substance: LISINOPRIL
  17. SPIRIVA [Concomitant]
     Active Substance: TIOTROPIUM BROMIDE MONOHYDRATE
  18. DIPHENHYDRAMINE. [Concomitant]
     Active Substance: DIPHENHYDRAMINE
  19. VITAMIN D3 [Concomitant]
     Active Substance: CHOLECALCIFEROL
     Dosage: 5000
  20. TRIAMCINOLONE [Concomitant]
     Active Substance: TRIAMCINOLONE
  21. NAPROXEN. [Concomitant]
     Active Substance: NAPROXEN
  22. METHYLPREDNISOLONE. [Concomitant]
     Active Substance: METHYLPREDNISOLONE
  23. ADVAIR HFA [Concomitant]
     Active Substance: FLUTICASONE PROPIONATE\SALMETEROL XINAFOATE
  24. ZEMAIRA [Suspect]
     Active Substance: .ALPHA.1-PROTEINASE INHIBITOR HUMAN
     Indication: ALPHA-1 ANTI-TRYPSIN DEFICIENCY
     Route: 042
  25. LIDOCAINE. [Concomitant]
     Active Substance: LIDOCAINE
  26. ALL OTHER THERAPEUTIC PRODUCTS [Concomitant]
     Active Substance: UNSPECIFIED INGREDIENT
  27. SUMATRIPTAN SUCCINATE. [Concomitant]
     Active Substance: SUMATRIPTAN SUCCINATE
  28. SEROQUEL [Concomitant]
     Active Substance: QUETIAPINE FUMARATE
  29. NEXIUM [Concomitant]
     Active Substance: ESOMEPRAZOLE MAGNESIUM
  30. LIDOCAINE/PRILOCAINE [Concomitant]
  31. OXYGEN. [Concomitant]
     Active Substance: OXYGEN
  32. EFFEXOR XR [Concomitant]
     Active Substance: VENLAFAXINE HYDROCHLORIDE
     Dosage: 75
  33. CRESTOR [Concomitant]
     Active Substance: ROSUVASTATIN CALCIUM

REACTIONS (1)
  - Nausea [Unknown]
